FAERS Safety Report 8826642 (Version 1)
Quarter: 2012Q4

REPORT INFORMATION
  Report Type: 
  Country: US (occurrence: US)
  Receive Date: 20121005
  Receipt Date: 20121005
  Transmission Date: 20130627
  Serious: Yes (Hospitalization)
  Sender: FDA-Public Use
  Company Number: US-BAYER-2012-103610

PATIENT
  Age: 79 Year
  Sex: Female

DRUGS (4)
  1. ACETYLSALICYLIC ACID (} 100 MG) [Suspect]
     Indication: STENT PLACEMENT
     Dosage: UNK
     Route: 048
  2. CLOPIDOGREL [Suspect]
     Indication: STENT PLACEMENT
     Dosage: UNK
     Route: 048
  3. CLOPIDOGREL [Suspect]
     Indication: STENT PLACEMENT
     Dosage: UNK
     Route: 048
  4. FONDAPARINUX [Suspect]
     Indication: THROMBOSIS PROPHYLAXIS
     Dosage: UNK
     Route: 048

REACTIONS (2)
  - Gastritis erosive [None]
  - Gastrointestinal haemorrhage [Recovered/Resolved]
